FAERS Safety Report 7442854-0 (Version None)
Quarter: 2011Q2

REPORT INFORMATION
  Report Type: 
  Country: None (occurrence: None)
  Receive Date: 20110425
  Receipt Date: 20110425
  Transmission Date: 20111010
  Serious: Yes (Death)
  Sender: FDA-Public Use
  Company Number: None

PATIENT
  Age: 40 Year
  Sex: Male
  Weight: 136.0791 kg

DRUGS (11)
  1. ELAVIL -AMITRYPTILINE- [Concomitant]
  2. SYNTHROID -LEVOTHYROID- [Concomitant]
  3. SENSIPAR -PARICALCITOL.- [Concomitant]
  4. CEFAZOLIN [Suspect]
     Indication: PREMEDICATION
     Dosage: 1GM ONCE IV BOLUS
     Route: 040
     Dates: start: 20110331, end: 20110331
  5. APRESOLINE [Concomitant]
  6. ALPRAZOLAM [Concomitant]
  7. TOPRAOL XL -METOPROLOL- [Concomitant]
  8. AVANDIA [Concomitant]
  9. COZAAR -VALSARTAN- [Concomitant]
  10. PROTONIX [Concomitant]
  11. ZOCOR -SIMVASATIN- [Concomitant]

REACTIONS (7)
  - COUGH [None]
  - TENSION [None]
  - CARDIO-RESPIRATORY ARREST [None]
  - OXYGEN SATURATION DECREASED [None]
  - SOMNOLENCE [None]
  - UNRESPONSIVE TO STIMULI [None]
  - CYANOSIS [None]
